FAERS Safety Report 13626159 (Version 1)
Quarter: 2017Q2

REPORT INFORMATION
  Report Type: Spontaneous
  Country: US (occurrence: US)
  Receive Date: 20170607
  Receipt Date: 20170607
  Transmission Date: 20170830
  Serious: Yes (Other)
  Sender: FDA-Public Use
  Company Number: None

PATIENT
  Age: 41 Year
  Sex: Male
  Weight: 107.1 kg

DRUGS (1)
  1. HUMERA [Suspect]
     Active Substance: ADALIMUMAB
     Indication: PSORIASIS
     Dates: start: 20120612, end: 20120612

REACTIONS (2)
  - Hidradenitis [None]
  - Psoriasis [None]

NARRATIVE: CASE EVENT DATE: 20120612
